FAERS Safety Report 17117808 (Version 2)
Quarter: 2020Q4

REPORT INFORMATION
  Report Type: Report from Study
  Country: AU (occurrence: AU)
  Receive Date: 20191205
  Receipt Date: 20201202
  Transmission Date: 20210113
  Serious: Yes (Other)
  Sender: FDA-Public Use
  Company Number: AU-JNJFOC-20191142607

PATIENT
  Age: 5 Decade
  Sex: Female

DRUGS (2)
  1. REMICADE [Suspect]
     Active Substance: INFLIXIMAB
     Indication: PSORIASIS
     Dosage: DOSE : WEIGHT DEPENDENT
     Route: 042
     Dates: start: 20170508
  2. REMICADE [Suspect]
     Active Substance: INFLIXIMAB
     Dosage: DOSE : WEIGHT DEPENDENT
     Route: 042
     Dates: start: 2018

REACTIONS (4)
  - Off label use [Unknown]
  - Dental care [Unknown]
  - Product use issue [Unknown]
  - Oral candidiasis [Not Recovered/Not Resolved]

NARRATIVE: CASE EVENT DATE: 2018
